FAERS Safety Report 6935115-7 (Version None)
Quarter: 2010Q3

REPORT INFORMATION
  Report Type: 
  Country: None (occurrence: None)
  Receive Date: 20100822
  Receipt Date: 20100814
  Transmission Date: 20110219
  Serious: Yes (Death, Other)
  Sender: FDA-Public Use
  Company Number: PHHY2010MX53938

PATIENT
  Sex: Female

DRUGS (1)
  1. STALEVO 100 [Suspect]
     Dosage: 3 TABLETS (200/100/25 MG) PER DAY
     Dates: start: 20100301

REACTIONS (4)
  - BLOOD PRESSURE ABNORMAL [None]
  - HEPATIC CIRRHOSIS [None]
  - INFECTION [None]
  - INGUINAL HERNIA [None]
